FAERS Safety Report 24570134 (Version 1)
Quarter: 2024Q4

REPORT INFORMATION
  Report Type: Report from Study
  Country: MX (occurrence: MX)
  Receive Date: 20241031
  Receipt Date: 20241031
  Transmission Date: 20250114
  Serious: Yes (Other)
  Sender: BIOVITRUM
  Company Number: MX-AstraZeneca-2024A204639

PATIENT
  Age: 107 Day
  Sex: Male
  Weight: 5.665 kg

DRUGS (3)
  1. PALIVIZUMAB [Suspect]
     Active Substance: PALIVIZUMAB
     Indication: Respiratory syncytial virus infection
     Dosage: 0.4 MILLILITER, QMONTH
     Route: 030
     Dates: start: 20240528, end: 20240528
  2. PALIVIZUMAB [Suspect]
     Active Substance: PALIVIZUMAB
     Dosage: 0.84 MILLILITER, QMONTH
     Route: 030
     Dates: start: 20241016, end: 20241016
  3. FLUTICASONE [Concomitant]
     Active Substance: FLUTICASONE
     Indication: Product used for unknown indication
     Dosage: 2 DOSAGE FORM, Q12H

REACTIONS (1)
  - Pulmonary hypertension [Recovered/Resolved]

NARRATIVE: CASE EVENT DATE: 20240701
